FAERS Safety Report 6823495-2 (Version None)
Quarter: 2010Q3

REPORT INFORMATION
  Report Type: 
  Country: None (occurrence: None)
  Receive Date: 20100708
  Receipt Date: 20100628
  Transmission Date: 20110219
  Serious: Yes (Hospitalization)
  Sender: FDA-Public Use
  Company Number: US-WYE-H12834410

PATIENT
  Sex: Male
  Weight: 92.62 kg

DRUGS (18)
  1. RELISTOR [Suspect]
     Indication: CONSTIPATION
     Route: 058
     Dates: start: 20100201, end: 20100201
  2. RELISTOR [Suspect]
     Indication: PAIN
  3. ACETAMINOPHEN AND OXYCODONE HCL [Concomitant]
     Dosage: UNKNOWN
  4. ALLEGRA [Concomitant]
     Dosage: UNKNOWN
  5. ZOCOR [Concomitant]
     Dosage: UNKNOWN
  6. DEPAKOTE [Concomitant]
     Dosage: UNKNOWN
  7. PAXIL [Concomitant]
     Dosage: UNKNOWN
  8. GEODON [Concomitant]
     Dosage: UNKNOWN
  9. REMERON [Concomitant]
     Dosage: UNKNOWN
  10. CLONAZEPAM [Concomitant]
     Dosage: UNKNOWN
  11. TESTOSTERONE [Concomitant]
     Dosage: UNKNOWN
     Route: 062
  12. COUMADIN [Concomitant]
     Dosage: UNKNOWN
  13. MIRALAX [Concomitant]
     Dosage: UNKNOWN
  14. DOCUSATE [Concomitant]
     Dosage: UNKNOWN
  15. OXYCONTIN [Concomitant]
     Dosage: 40 MG, UNSPECIFIED FREQUENCY
  16. AMFEBUTAMONE [Concomitant]
     Dosage: UNKNOWN
  17. NORTRIPTYLINE [Concomitant]
     Dosage: UNKNOWN
  18. METHADONE [Concomitant]
     Dosage: UNKNOWN

REACTIONS (8)
  - ACTIVITIES OF DAILY LIVING IMPAIRED [None]
  - BEDRIDDEN [None]
  - COLD SWEAT [None]
  - FLUSHING [None]
  - HYPERHIDROSIS [None]
  - HYPERSENSITIVITY [None]
  - IMPAIRED WORK ABILITY [None]
  - INCORRECT ROUTE OF DRUG ADMINISTRATION [None]
